FAERS Safety Report 9821943 (Version 3)
Quarter: 2014Q2

REPORT INFORMATION
  Report Type: Report from Study
  Country: US (occurrence: US)
  Receive Date: 20140116
  Receipt Date: 20140527
  Transmission Date: 20141212
  Serious: Yes (Other)
  Sender: FDA-Public Use
  Company Number: US-ABBVIE-14P-163-1187426-00

PATIENT
  Age: 41 Year
  Sex: Female
  Weight: 74.46 kg

DRUGS (6)
  1. HUMIRA [Suspect]
     Indication: PSORIASIS
     Dosage: ONE TIME DOSE
     Route: 058
     Dates: start: 20131028, end: 20131028
  2. HUMIRA [Suspect]
     Route: 058
     Dates: start: 20131107, end: 20131230
  3. METHOTREXATE [Concomitant]
     Indication: PSORIASIS
  4. METHOTREXATE [Concomitant]
  5. FOLIC ACID [Concomitant]
     Indication: VITAMIN SUPPLEMENTATION
  6. ZYRTEC [Concomitant]
     Indication: PRODUCT USED FOR UNKNOWN INDICATION

REACTIONS (5)
  - Skin plaque [Not Recovered/Not Resolved]
  - Lupus-like syndrome [Not Recovered/Not Resolved]
  - Mycosis fungoides [Unknown]
  - T-cell lymphoma [Unknown]
  - Drug ineffective [Unknown]
